FAERS Safety Report 23564819 (Version 2)
Quarter: 2024Q1

REPORT INFORMATION
  Report Type: Spontaneous
  Country: CZ (occurrence: CZ)
  Receive Date: 20240226
  Receipt Date: 20240226
  Transmission Date: 20240409
  Serious: Yes (Hospitalization)
  Sender: FDA-Public Use
  Company Number: None

PATIENT
  Sex: Male

DRUGS (6)
  1. BRIVIACT [Suspect]
     Active Substance: BRIVARACETAM
     Indication: Partial seizures
     Dosage: 125 MILLIGRAM, 2X/DAY (BID) (125-0-125))
  2. VENLAFAXINE HYDROCHLORIDE [Suspect]
     Active Substance: VENLAFAXINE HYDROCHLORIDE
     Indication: Partial seizures
     Dosage: UNK
  3. PERAMPANEL [Suspect]
     Active Substance: PERAMPANEL
     Indication: Partial seizures
     Dosage: 12 MILLIGRAM, ONCE DAILY (QD) AT NIGHT
  4. CENOBAMATE [Suspect]
     Active Substance: CENOBAMATE
     Indication: Partial seizures
     Dosage: TITRATED AS RECOMMENDED
     Route: 048
     Dates: start: 202303
  5. CENOBAMATE [Suspect]
     Active Substance: CENOBAMATE
     Dosage: 400 MILLIGRAM, ONCE DAILY (QD) 0-0-400 MG
     Route: 048
     Dates: start: 202306
  6. CENOBAMATE [Suspect]
     Active Substance: CENOBAMATE
     Dosage: UNK
     Route: 048
     Dates: start: 202304

REACTIONS (5)
  - Pulmonary embolism [Recovered/Resolved]
  - Deep vein thrombosis [Recovered/Resolved]
  - Fatigue [Unknown]
  - Off label use [Unknown]
  - Prescribed overdose [Unknown]
